FAERS Safety Report 8850630 (Version 2)
Quarter: 2013Q1

REPORT INFORMATION
  Report Type: Spontaneous
  Country: JP (occurrence: JP)
  Receive Date: 20121019
  Receipt Date: 20130131
  Transmission Date: 20140127
  Serious: Yes (Other)
  Sender: FDA-Public Use
  Company Number: JP-ASTRAZENECA-2012SE42505

PATIENT
  Age: 26213 Day
  Sex: Female
  Weight: 63 kg

DRUGS (6)
  1. FASLODEX [Suspect]
     Indication: BREAST CANCER
     Dosage: 500 MG ONCE IN 2-4 WEEKS
     Route: 030
     Dates: start: 20120407, end: 20120818
  2. FASLODEX [Suspect]
     Indication: BREAST CANCER
     Route: 030
  3. RANMARK [Suspect]
     Indication: METASTASES TO BONE
     Route: 058
     Dates: start: 20120407, end: 20120818
  4. MAGLAX [Suspect]
     Indication: CONSTIPATION
     Route: 048
     Dates: start: 200801
  5. LASIX [Suspect]
     Indication: HYPERTENSION
     Route: 048
     Dates: start: 200801
  6. ACTONEL [Suspect]
     Indication: OSTEOPOROSIS
     Route: 048
     Dates: start: 200801

REACTIONS (2)
  - Anaemia [Recovering/Resolving]
  - Platelet count decreased [Recovering/Resolving]
